FAERS Safety Report 7932892-3 (Version None)
Quarter: 2011Q4

REPORT INFORMATION
  Report Type: 
  Country: None (occurrence: None)
  Receive Date: 20111122
  Receipt Date: 20111117
  Transmission Date: 20120403
  Serious: Yes (Other)
  Sender: FDA-Public Use
  Company Number: GB-ASTELLAS-2011EU008307

PATIENT
  Age: 63 Year
  Sex: Male
  Weight: 90 kg

DRUGS (14)
  1. ASPIRIN [Concomitant]
     Dosage: 75 MG, UID/QD
     Route: 065
  2. CARBOCISTEIN [Concomitant]
     Dosage: 375 MG, TID
     Route: 065
  3. ERYTHROMYCIN [Concomitant]
     Dosage: 250 MG, 3XWEEKLY
     Route: 065
  4. GLYCERYL TRINITRATE [Concomitant]
     Dosage: 400 UG, PRN
     Route: 060
  5. VENTOLIN [Concomitant]
     Dosage: 2 DF, PRN
     Route: 055
  6. ACETAMINOPHEN [Concomitant]
     Dosage: 500 MG, UNKNOWN/D
     Route: 065
  7. ATENOLOL [Concomitant]
     Dosage: 50 MG, UID/QD
     Route: 065
  8. VESICARE [Suspect]
     Indication: HYPERTONIC BLADDER
     Dosage: 10 MG, UNKNOWN/D
     Route: 048
     Dates: start: 20110509, end: 20110920
  9. CANDESARTAN CILEXETIL [Concomitant]
     Dosage: 4 MG, UID/QD
     Route: 065
  10. SYMBICORT [Concomitant]
     Dosage: 2 DF, BID
     Route: 055
  11. LANSOPRAZOLE [Concomitant]
     Dosage: 30 MG, UID/QD
     Route: 065
  12. BECLOMETHASONE DIPROPIONATE [Concomitant]
     Dosage: 50 UG, UNKNOWN/D
     Route: 065
  13. FLUOXETINE [Concomitant]
     Dosage: 20 MG, UID/QD
     Route: 065
  14. SIMVASTATIN [Concomitant]
     Dosage: 40 MG, UID/QD
     Route: 065

REACTIONS (2)
  - CONFUSIONAL STATE [None]
  - COGNITIVE DISORDER [None]
